FAERS Safety Report 19193993 (Version 1)
Quarter: 2021Q2

REPORT INFORMATION
  Report Type: Spontaneous
  Country: US (occurrence: US)
  Receive Date: 20210428
  Receipt Date: 20210428
  Transmission Date: 20210717
  Serious: Yes (Death)
  Sender: FDA-Public Use
  Company Number: None

PATIENT
  Age: 86 Year
  Sex: Male

DRUGS (1)
  1. RETACRIT [Suspect]
     Active Substance: EPOETIN ALFA-EPBX
     Indication: NEPHROGENIC ANAEMIA
     Dosage: ?          OTHER STRENGTH:4,000U/ML;?
     Route: 058
     Dates: start: 20201223, end: 20210123

REACTIONS (1)
  - Death [None]

NARRATIVE: CASE EVENT DATE: 20210220
